FAERS Safety Report 9348943 (Version 1)
Quarter: 2013Q2

REPORT INFORMATION
  Report Type: Spontaneous
  Country: DK (occurrence: FR)
  Receive Date: 20130614
  Receipt Date: 20130614
  Transmission Date: 20140414
  Serious: Yes (Hospitalization)
  Sender: FDA-Public Use
  Company Number: FR-FRI-1000045926

PATIENT
  Age: 91 Year
  Sex: Female

DRUGS (8)
  1. ESCITALOPRAM [Suspect]
     Route: 048
     Dates: start: 201206, end: 20130503
  2. COVERSYL [Suspect]
     Route: 048
     Dates: start: 201206
  3. SELOKEN [Suspect]
     Route: 048
     Dates: start: 201206
  4. PARACETAMOL [Suspect]
     Route: 048
     Dates: start: 201206
  5. LASILIX [Suspect]
     Dates: start: 20130214
  6. OGAST [Suspect]
     Dates: start: 201206, end: 20130503
  7. SERESTA [Suspect]
     Route: 048
  8. VICTAN [Suspect]
     Dates: start: 201206, end: 20130503

REACTIONS (1)
  - Toxic skin eruption [Not Recovered/Not Resolved]
